FAERS Safety Report 8501287-6 (Version None)
Quarter: 2012Q3

REPORT INFORMATION
  Report Type: 
  Country: None (occurrence: None)
  Receive Date: 20120710
  Receipt Date: 20120705
  Transmission Date: 20120928
  Serious: No
  Sender: FDA-Public Use
  Company Number: US-PFIZER INC-2012162656

PATIENT
  Sex: Female
  Weight: 110 kg

DRUGS (6)
  1. GABAPENTIN [Suspect]
     Indication: BACK PAIN
  2. CYCLOBENZAPRINE [Suspect]
     Indication: PAIN IN EXTREMITY
     Dosage: 10 MG, DAILY
  3. FLEXERIL [Suspect]
     Indication: PAIN IN EXTREMITY
     Dosage: UNK
  4. FLEXERIL [Suspect]
     Indication: BACK PAIN
  5. GABAPENTIN [Suspect]
     Indication: PAIN IN EXTREMITY
     Dosage: 300 MG, 3X/DAY
     Dates: start: 20080101
  6. CYCLOBENZAPRINE [Suspect]
     Indication: BACK PAIN

REACTIONS (7)
  - HYPOAESTHESIA [None]
  - HANGOVER [None]
  - PAIN IN EXTREMITY [None]
  - DRUG INEFFECTIVE [None]
  - OEDEMA PERIPHERAL [None]
  - EMOTIONAL DISORDER [None]
  - RASH [None]
